FAERS Safety Report 7536909-X (Version None)
Quarter: 2011Q2

REPORT INFORMATION
  Report Type: 
  Country: None (occurrence: None)
  Receive Date: 20110609
  Receipt Date: 20110531
  Transmission Date: 20111010
  Serious: Yes (Hospitalization)
  Sender: FDA-Public Use
  Company Number: US-BAXTER-2011BH016884

PATIENT
  Sex: Male
  Weight: 82 kg

DRUGS (4)
  1. DIANEAL [Suspect]
     Route: 033
     Dates: start: 20100720
  2. EXTRANEAL [Suspect]
     Indication: PERITONEAL DIALYSIS
     Route: 033
     Dates: start: 20100720
  3. DIANEAL [Suspect]
     Indication: PERITONEAL DIALYSIS
     Route: 033
     Dates: start: 20100720
  4. ENALAPRIL MALEATE [Concomitant]
     Indication: BLOOD PRESSURE
     Route: 065
     Dates: end: 20110501

REACTIONS (3)
  - BLOOD PRESSURE FLUCTUATION [None]
  - RENAL CANCER [None]
  - ABDOMINAL DISTENSION [None]
